FAERS Safety Report 4339969-2 (Version None)
Quarter: 2004Q2

REPORT INFORMATION
  Report Type: 
  Country: None (occurrence: None)
  Receive Date: 20040412
  Receipt Date: 20040329
  Transmission Date: 20050107
  Serious: No
  Sender: FDA-Public Use
  Company Number: 04P-008-0254946-00

PATIENT
  Age: 68 Year
  Sex: Female

DRUGS (4)
  1. VALPROATE SODIUM [Suspect]
     Dosage: SEE IMAGE
     Dates: end: 20040317
  2. VALPROATE SODIUM [Suspect]
     Dosage: SEE IMAGE
     Dates: start: 20040317
  3. SERTRALINE HYDROCHLORIDE [Concomitant]
  4. OLANZAPINE [Concomitant]

REACTIONS (4)
  - CONVULSION [None]
  - DRUG INEFFECTIVE [None]
  - DRUG LEVEL INCREASED [None]
  - GAIT DISTURBANCE [None]
